FAERS Safety Report 7379042-2 (Version None)
Quarter: 2011Q1

REPORT INFORMATION
  Report Type: 
  Country: None (occurrence: None)
  Receive Date: 20110328
  Receipt Date: 20110323
  Transmission Date: 20110831
  Serious: Yes (Death, Hospitalization)
  Sender: FDA-Public Use
  Company Number: DE-ROCHE-763496

PATIENT
  Sex: Male
  Weight: 89 kg

DRUGS (16)
  1. FORTECORTIN [Concomitant]
     Dates: start: 20110216, end: 20110216
  2. PANTOZOL [Concomitant]
     Dates: end: 20110301
  3. PREDNISONE [Concomitant]
     Dates: end: 20110301
  4. BEVACIZUMAB [Suspect]
     Indication: COLORECTAL CANCER
     Dosage: FREQUECY: ONCE, FORM: INFUSION, BW DI Q21, PERMANENTLY DISCONTINUED.
     Route: 042
     Dates: start: 20110216, end: 20110216
  5. CAPECITABINE [Suspect]
     Indication: COLORECTAL CANCER
     Dosage: D1 D14 Q 21
     Route: 048
     Dates: start: 20110216, end: 20110228
  6. CAMPTOSAR [Suspect]
     Indication: COLORECTAL CANCER
     Dosage: FREQUENCY: ONCE, FORM: INFUSION, D1 D21, PERMANENTLY DISCONTINUED.
     Route: 042
     Dates: start: 20110216, end: 20110216
  7. BISOPROLOL [Concomitant]
     Dates: start: 20090101, end: 20110214
  8. RAMIPRIL [Concomitant]
     Dates: start: 20110215, end: 20110301
  9. CHARCOAL/SORBITOL [Concomitant]
     Dosage: 6 TABLETS
     Dates: start: 20110216
  10. PREDNISOLONE [Concomitant]
     Dates: start: 20110221, end: 20110301
  11. FENTANYL [Concomitant]
     Dates: end: 20110301
  12. VITAMIN B COMPLEX CAP [Concomitant]
     Dates: end: 20100301
  13. BAYOTENSIN [Concomitant]
     Dates: start: 20110216, end: 20110216
  14. ATROPIN [Concomitant]
     Dosage: ATROPINE SULFATE, DAILY DOSE: 1/2 AMP
     Dates: start: 20110216, end: 20110216
  15. KEVATRIL [Concomitant]
     Dosage: 1 AMPULE
     Dates: start: 20110216, end: 20110216
  16. SERTRALINE HYDROCHLORIDE [Concomitant]

REACTIONS (2)
  - ILEUS [None]
  - INTESTINAL ISCHAEMIA [None]
